FAERS Safety Report 18217752 (Version 1)
Quarter: 2020Q3

REPORT INFORMATION
  Report Type: Report from Study
  Country: CA (occurrence: CA)
  Receive Date: 20200901
  Receipt Date: 20200901
  Transmission Date: 20201103
  Serious: Yes (Other)
  Sender: FDA-Public Use
  Company Number: CA-JNJFOC-20200832645

PATIENT
  Age: 56 Year
  Sex: Male
  Weight: 97 kg

DRUGS (1)
  1. REMICADE [Suspect]
     Active Substance: INFLIXIMAB
     Indication: COLITIS ULCERATIVE
     Route: 042
     Dates: start: 20200512

REACTIONS (3)
  - Malignant polyp [Not Recovered/Not Resolved]
  - Weight increased [Unknown]
  - Gastrointestinal polyp [Not Recovered/Not Resolved]

NARRATIVE: CASE EVENT DATE: 2020
